FAERS Safety Report 12577118 (Version 1)
Quarter: 2016Q3

REPORT INFORMATION
  Report Type: Report from Study
  Country: US (occurrence: US)
  Receive Date: 20160720
  Receipt Date: 20160720
  Transmission Date: 20161109
  Serious: Yes (Other)
  Sender: FDA-Public Use
  Company Number: US-BAXALTA-2016BLT005119

PATIENT
  Sex: Female

DRUGS (1)
  1. GAMMAGARD LIQUID [Suspect]
     Active Substance: HUMAN IMMUNOGLOBULIN G
     Indication: PRIMARY IMMUNODEFICIENCY SYNDROME
     Dosage: 8 G, 1X A WEEK
     Route: 058
     Dates: start: 201604

REACTIONS (4)
  - Fatigue [Unknown]
  - Facial pain [Not Recovered/Not Resolved]
  - Hypersomnia [Unknown]
  - Sinusitis [Unknown]
